FAERS Safety Report 7477505-2 (Version None)
Quarter: 2011Q2

REPORT INFORMATION
  Report Type: 
  Country: None (occurrence: None)
  Receive Date: 20110427
  Receipt Date: 20110427
  Transmission Date: 20111010
  Serious: No
  Sender: FDA-Public Use
  Company Number: None

PATIENT
  Age: 66 Year
  Sex: Male
  Weight: 74.3899 kg

DRUGS (2)
  1. HUMIRA [Suspect]
     Indication: CROHN'S DISEASE
     Dosage: 40 MG BI-WEEKLY IM
     Route: 030
     Dates: start: 20060501, end: 20110423
  2. HUMIRA [Suspect]
     Indication: RHEUMATOID ARTHRITIS
     Dosage: 40 MG BI-WEEKLY IM
     Route: 030
     Dates: start: 20060501, end: 20110423

REACTIONS (1)
  - BLOOD CREATINE INCREASED [None]
